APPROVED DRUG PRODUCT: DOXYCYCLINE HYCLATE
Active Ingredient: DOXYCYCLINE HYCLATE
Strength: EQ 100MG BASE
Dosage Form/Route: TABLET, DELAYED RELEASE;ORAL
Application: A090134 | Product #002 | TE Code: AB
Applicant: ACTAVIS ELIZABETH LLC
Approved: Dec 14, 2011 | RLD: No | RS: No | Type: RX